FAERS Safety Report 14305341 (Version 1)
Quarter: 2017Q4

REPORT INFORMATION
  Report Type: Spontaneous
  Country: DK (occurrence: DK)
  Receive Date: 20171219
  Receipt Date: 20171219
  Transmission Date: 20180321
  Serious: Yes (Death, Life-Threatening)
  Sender: FDA-Public Use
  Company Number: DK-OTSUKA-DJ20122930

PATIENT
  Age: 39 Year
  Sex: Male
  Weight: 150 kg

DRUGS (1)
  1. ABILIFY [Suspect]
     Active Substance: ARIPIPRAZOLE
     Indication: SCHIZOAFFECTIVE DISORDER
     Dosage: 30 MG, UNK
     Route: 048
     Dates: start: 2009

REACTIONS (2)
  - Cor pulmonale [Unknown]
  - Death [Fatal]

NARRATIVE: CASE EVENT DATE: 20120510
